FAERS Safety Report 13282160 (Version 1)
Quarter: 2017Q1

REPORT INFORMATION
  Report Type: Spontaneous
  Country: US (occurrence: US)
  Receive Date: 20170301
  Receipt Date: 20170301
  Transmission Date: 20170428
  Serious: No
  Sender: FDA-Public Use
  Company Number: US-MYLANLABS-2016M1012131

PATIENT
  Sex: Male

DRUGS (3)
  1. METFORMIN [Suspect]
     Active Substance: METFORMIN HYDROCHLORIDE
     Dosage: 1000 MG, QAM
     Route: 048
  2. METFORMIN [Suspect]
     Active Substance: METFORMIN HYDROCHLORIDE
     Dosage: 1000 MG, AM
  3. PRANDIN                            /00882701/ [Suspect]
     Active Substance: DEFLAZACORT
     Dosage: UNK

REACTIONS (2)
  - Myalgia [Recovered/Resolved]
  - Vision blurred [Not Recovered/Not Resolved]
